FAERS Safety Report 9804208 (Version 1)
Quarter: 2014Q1

REPORT INFORMATION
  Report Type: Spontaneous
  Country: US (occurrence: None)
  Receive Date: 20140106
  Receipt Date: 20140106
  Transmission Date: 20141002
  Serious: No
  Sender: FDA-Public Use
  Company Number: 2013-00165

PATIENT
  Age: 64 Year
  Sex: Female
  Weight: 45.36 kg

DRUGS (4)
  1. ZICAM COLD REMEDY GEL SWABS [Suspect]
     Indication: INFLUENZA
     Dosage: 1 GEL SWAB INTO NOSE
     Dates: start: 20131226, end: 20131226
  2. ZICAM COLD REMEDY ORAL MIST [Suspect]
     Indication: INFLUENZA
     Dosage: 4 SPRAYS ORALLY EVERY 3 HOURS
     Dates: start: 20131226, end: 20131226
  3. HYDROCHLOROTHIAZIDE [Concomitant]
  4. PREMARIN [Concomitant]

REACTIONS (3)
  - Glossitis [None]
  - Ageusia [None]
  - Diarrhoea [None]
